FAERS Safety Report 6846251-8 (Version None)
Quarter: 2010Q3

REPORT INFORMATION
  Report Type: 
  Country: None (occurrence: None)
  Receive Date: 20100712
  Receipt Date: 20100625
  Transmission Date: 20110219
  Serious: No
  Sender: FDA-Public Use
  Company Number: 625042

PATIENT
  Age: 55 Year
  Sex: Female

DRUGS (1)
  1. LIDOCAINE HCL [Suspect]
     Indication: ANAESTHESIA
     Dosage: LOCAL INFILTRATION
     Dates: start: 20100625

REACTIONS (1)
  - PRODUCT CONTAMINATION PHYSICAL [None]
